FAERS Safety Report 22641098 (Version 1)
Quarter: 2023Q2

REPORT INFORMATION
  Report Type: Spontaneous
  Country: GB (occurrence: GB)
  Receive Date: 20230626
  Receipt Date: 20230626
  Transmission Date: 20230721
  Serious: Yes (Other)
  Sender: FDA-Public Use
  Company Number: None

PATIENT
  Age: 79 Year
  Sex: Female
  Weight: 59.2 kg

DRUGS (4)
  1. CITALOPRAM [Suspect]
     Active Substance: CITALOPRAM HYDROBROMIDE
     Indication: Depression
     Dosage: 10 MILLIGRAM, QD
     Route: 065
     Dates: start: 20230524
  2. ESTRIOL [Concomitant]
     Active Substance: ESTRIOL
     Dosage: 15 GRAM, Q2W(TO BE INSERTED AS REQUESTED BY UROGYNAECOLOGY)
     Route: 065
     Dates: start: 20230420
  3. MIRTAZAPINE [Concomitant]
     Active Substance: MIRTAZAPINE
     Indication: Depression
     Dosage: 15 MILLIGRAM, QD(AT NIGHT)
     Route: 065
     Dates: start: 20230530
  4. COVID-19 vaccine [Concomitant]
     Dosage: 0.3 MILLILITER
     Route: 030
     Dates: start: 20230527, end: 20230527

REACTIONS (4)
  - Depressed level of consciousness [Recovered/Resolved]
  - Musculoskeletal chest pain [Recovered/Resolved]
  - Depression [Recovered/Resolved]
  - Confusional state [Recovered/Resolved]
